FAERS Safety Report 24086748 (Version 1)
Quarter: 2024Q3

REPORT INFORMATION
  Report Type: Spontaneous
  Country: IT (occurrence: IT)
  Receive Date: 20240713
  Receipt Date: 20240713
  Transmission Date: 20241017
  Serious: Yes (Hospitalization)
  Sender: SANOFI AVENTIS
  Company Number: None

PATIENT
  Age: 91 Year
  Sex: Male

DRUGS (8)
  1. PLAVIX [Suspect]
     Active Substance: CLOPIDOGREL BISULFATE
     Dosage: 75 MG, QD,1 TAB 8:00 AM
     Route: 048
  2. CYMBALTA [Concomitant]
     Active Substance: DULOXETINE HYDROCHLORIDE
     Dosage: 1 DF, QD
  3. ALLOPURINOL [Concomitant]
     Active Substance: ALLOPURINOL
     Dosage: 0.5 DF, QD
  4. LYRICA [Concomitant]
     Active Substance: PREGABALIN
     Dosage: 1 DF, QD
  5. BISOPROLOL FUMARATE [Concomitant]
     Active Substance: BISOPROLOL FUMARATE
     Dosage: 1 DF, QD
  6. ZESTRIL [Concomitant]
     Active Substance: LISINOPRIL
     Dosage: 1 DF, QD
  7. FINESTAR [Concomitant]
     Dosage: 1 DF, QD
  8. FOLIC ACID [Concomitant]
     Active Substance: FOLIC ACID
     Dosage: 1 DF

REACTIONS (2)
  - Strangury [Unknown]
  - Haematuria [Unknown]

NARRATIVE: CASE EVENT DATE: 20240522
